FAERS Safety Report 17526098 (Version 4)
Quarter: 2021Q4

REPORT INFORMATION
  Report Type: Report from Study
  Country: US (occurrence: US)
  Receive Date: 20200311
  Receipt Date: 20211026
  Transmission Date: 20220303
  Serious: Yes (Death, Hospitalization)
  Sender: FDA-Public Use
  Company Number: US-ACCORD-175352

PATIENT
  Age: 58 Year
  Sex: Female
  Weight: 103 kg

DRUGS (2)
  1. CLOZAPINE [Suspect]
     Active Substance: CLOZAPINE
     Indication: Product used for unknown indication
     Route: 048
  2. INVEGA SUSTENNA [Concomitant]
     Active Substance: PALIPERIDONE PALMITATE
     Route: 030

REACTIONS (3)
  - Neutrophilia [Not Recovered/Not Resolved]
  - Lung cancer metastatic [Unknown]
  - Death [Fatal]

NARRATIVE: CASE EVENT DATE: 20200215
